FAERS Safety Report 4430623-5 (Version None)
Quarter: 2004Q3

REPORT INFORMATION
  Report Type: 
  Country: None (occurrence: None)
  Receive Date: 20040817
  Receipt Date: 20040802
  Transmission Date: 20050211
  Serious: Yes (Congenital Anomaly)
  Sender: FDA-Public Use
  Company Number: 04P-056-0265288-00

PATIENT
  Sex: Male
  Weight: 2.41 kg

DRUGS (2)
  1. KALETRA [Suspect]
  2. ZIDOVUDINE [Concomitant]

REACTIONS (8)
  - CEREBRAL VENTRICLE DILATATION [None]
  - CONGENITAL ANOMALY [None]
  - CONGENITAL INTESTINAL MALFORMATION [None]
  - DRUG EXPOSURE DURING PREGNANCY [None]
  - POLYHYDRAMNIOS [None]
  - PREMATURE BABY [None]
  - SMALL FOR DATES BABY [None]
  - ULTRASOUND ABDOMEN ABNORMAL [None]
